FAERS Safety Report 11968286 (Version 2)
Quarter: 2016Q2

REPORT INFORMATION
  Report Type: Report from Study
  Country: US (occurrence: US)
  Receive Date: 20160127
  Receipt Date: 20160509
  Transmission Date: 20160815
  Serious: Yes (Death)
  Sender: FDA-Public Use
  Company Number: US-ASTRAZENECA-2016SE07010

PATIENT
  Age: 142 Day
  Sex: Female
  Weight: 12.8 kg

DRUGS (7)
  1. ENALAPRIL [Concomitant]
     Active Substance: ENALAPRIL
     Indication: HEART DISEASE CONGENITAL
     Route: 048
     Dates: start: 20151116
  2. NYSTATIN. [Concomitant]
     Active Substance: NYSTATIN
     Dosage: 100000 UNITS/ML, 1 MILLILITER TAKEN BY MOUTH 4 TIMES A DAY
  3. SYNAGIS [Suspect]
     Active Substance: PALIVIZUMAB
     Indication: PREMATURE BABY
     Route: 030
     Dates: start: 20151114, end: 20151228
  4. SYNAGIS [Suspect]
     Active Substance: PALIVIZUMAB
     Indication: PREMATURE BABY
     Route: 030
     Dates: start: 20151118, end: 20160113
  5. LASIX [Concomitant]
     Active Substance: FUROSEMIDE
     Indication: HEART DISEASE CONGENITAL
     Route: 048
     Dates: start: 20151010, end: 20151105
  6. SYNAGIS [Suspect]
     Active Substance: PALIVIZUMAB
     Indication: ANTIVIRAL PROPHYLAXIS
     Route: 030
     Dates: start: 20151118, end: 20160113
  7. SYNAGIS [Suspect]
     Active Substance: PALIVIZUMAB
     Indication: ANTIVIRAL PROPHYLAXIS
     Route: 030
     Dates: start: 20151114, end: 20151228

REACTIONS (3)
  - Heart block congenital [Fatal]
  - Vomiting [Unknown]
  - Hypophagia [Unknown]

NARRATIVE: CASE EVENT DATE: 20160116
